FAERS Safety Report 11177834 (Version 1)
Quarter: 2015Q2

REPORT INFORMATION
  Report Type: Spontaneous
  Country: US (occurrence: None)
  Receive Date: 20150515
  Receipt Date: 20150515
  Transmission Date: 20150821
  Serious: Yes (Hospitalization)
  Sender: FDA-Public Use
  Company Number: 116482

PATIENT
  Age: 52 Year
  Sex: Female
  Weight: 67.3 kg

DRUGS (5)
  1. GLUCOSAMINE CON CHONDROITIN [Concomitant]
  2. CIMZIA [Suspect]
     Active Substance: CERTOLIZUMAB PEGOL
     Indication: RHEUMATOID ARTHRITIS
     Dosage: FROM 1 OR 2 YEARS, SUBCUTANEOUS
     Route: 058
  3. METHOTREXATE [Concomitant]
     Active Substance: METHOTREXATE
  4. PREDNISONE. [Concomitant]
     Active Substance: PREDNISONE
  5. DYAZIDE (HYDROCHLOROTHIAZIDE; TRIAMTERENE) [Concomitant]

REACTIONS (4)
  - Fatigue [None]
  - Back pain [None]
  - Arthralgia [None]
  - Incision site erythema [None]

NARRATIVE: CASE EVENT DATE: 201312
